FAERS Safety Report 8980088 (Version 2)
Quarter: 2013Q2

REPORT INFORMATION
  Report Type: Spontaneous
  Country: US (occurrence: US)
  Receive Date: 20121221
  Receipt Date: 20130621
  Transmission Date: 20140414
  Serious: Yes (Other)
  Sender: FDA-Public Use
  Company Number: CHPA2012US025423

PATIENT
  Age: 68 Year
  Sex: Male

DRUGS (7)
  1. MAALOX ANTACID/ANTIGAS MAX LIQ [Suspect]
     Indication: GASTROOESOPHAGEAL REFLUX DISEASE
     Dosage: AS DIRECTED, PRN
     Route: 048
     Dates: start: 2011
  2. GAS-X [Concomitant]
     Indication: ABDOMINAL DISTENSION
     Dosage: 125 MG, PRN
     Dates: start: 2012
  3. GAS-X [Concomitant]
     Indication: ERUCTATION
  4. SIMETHICONE [Concomitant]
     Indication: ABDOMINAL DISTENSION
     Dosage: 160 MG, PRN
     Dates: start: 201211
  5. SIMETHICONE [Concomitant]
     Indication: ERUCTATION
  6. ALKA-SELTZER                            /USA/ [Concomitant]
     Indication: ABDOMINAL DISTENSION
     Dosage: 2 DF, PRN
  7. ALKA-SELTZER                            /USA/ [Concomitant]
     Indication: ERUCTATION

REACTIONS (6)
  - Coronary artery occlusion [Recovered/Resolved]
  - Myocardial infarction [Recovered/Resolved]
  - Abdominal discomfort [Unknown]
  - Disease recurrence [Unknown]
  - Off label use [Unknown]
  - Therapeutic response unexpected [Unknown]
